FAERS Safety Report 15454543 (Version 1)
Quarter: 2018Q4

REPORT INFORMATION
  Report Type: Spontaneous
  Country: US (occurrence: US)
  Receive Date: 20181002
  Receipt Date: 20181002
  Transmission Date: 20190204
  Serious: No
  Sender: FDA-Public Use
  Company Number: US-PFIZER INC-2018392461

PATIENT
  Age: 62 Year
  Sex: Female

DRUGS (1)
  1. JUNIOR STRENGTH ADVIL [Suspect]
     Active Substance: IBUPROFEN
     Dosage: 100 MG, UNK

REACTIONS (5)
  - Headache [Recovered/Resolved]
  - Increased upper airway secretion [Recovered/Resolved]
  - Upper respiratory tract congestion [Recovered/Resolved]
  - Oral disorder [Recovered/Resolved]
  - Product use issue [Unknown]
